FAERS Safety Report 7000757-X (Version None)
Quarter: 2010Q3

REPORT INFORMATION
  Report Type: 
  Country: None (occurrence: None)
  Receive Date: 20100920
  Receipt Date: 20100517
  Transmission Date: 20110219
  Serious: Yes (Hospitalization)
  Sender: FDA-Public Use
  Company Number: US-ASTRAZENECA-2007UW08794

PATIENT
  Age: 50 Year
  Sex: Male
  Weight: 72.9 kg

DRUGS (7)
  1. SEROQUEL [Suspect]
     Dosage: 25-200 MG
     Route: 048
     Dates: start: 20040811
  2. PERPHENAZINE [Concomitant]
     Dates: start: 20041004
  3. TRAZODONE HCL [Concomitant]
     Dates: start: 20040909
  4. LIPITOR [Concomitant]
     Dates: start: 20040811
  5. TRILEPTAL [Concomitant]
     Dosage: 150-300 MG
     Dates: start: 20040909
  6. GEODON [Concomitant]
     Dates: start: 20041108
  7. PAXIL [Concomitant]
     Dates: start: 20070121

REACTIONS (4)
  - DIABETES MELLITUS [None]
  - DIABETIC KETOACIDOSIS [None]
  - METABOLIC ACIDOSIS [None]
  - TYPE 2 DIABETES MELLITUS [None]
